FAERS Safety Report 18469152 (Version 8)
Quarter: 2021Q1

REPORT INFORMATION
  Report Type: Spontaneous
  Country: IE (occurrence: IE)
  Receive Date: 20201105
  Receipt Date: 20210115
  Transmission Date: 20210419
  Serious: Yes (Hospitalization)
  Sender: FDA-Public Use
  Company Number: IE-PFIZER INC-2020420525

PATIENT
  Age: 3 Year
  Sex: Male

DRUGS (1)
  1. GENOTROPIN [Suspect]
     Active Substance: SOMATROPIN
     Indication: CHRONIC KIDNEY DISEASE
     Dosage: 0.4 MG, UNK

REACTIONS (9)
  - Renal disorder [Unknown]
  - Emotional distress [Unknown]
  - Hyperaesthesia [Unknown]
  - Incorrect dose administered by device [Unknown]
  - Needle issue [Unknown]
  - Device use issue [Unknown]
  - Therapeutic product effect incomplete [Unknown]
  - Fear of injection [Unknown]
  - Stress [Unknown]
